FAERS Safety Report 5319148-2 (Version None)
Quarter: 2007Q1

REPORT INFORMATION
  Report Type: 
  Country: None (occurrence: None)
  Receive Date: 20070208
  Receipt Date: 20060825
  Transmission Date: 20070707
  Serious: Yes (Life-Threatening, Hospitalization)
  Sender: FDA-Public Use
  Company Number: 20060825VANCO0200

PATIENT
  Age: 89 Year
  Sex: Female

DRUGS (20)
  1. VANCOMYCIN HCL [Suspect]
     Indication: CLOSTRIDIUM DIFFICILE COLITIS
     Dosage: 375 MG (125 MG,3 IN 1 D), ORAL
     Route: 048
     Dates: start: 20060622, end: 20060703
  2. AMLODIPINE [Concomitant]
  3. ASPIRIN [Concomitant]
  4. BENZYLPENICILLIN (BENZYLPENICILLIN) [Concomitant]
  5. BETAHISTINE (BETAHISTINE) [Concomitant]
  6. BUMETANIDE [Concomitant]
  7. CEFUROXIME [Concomitant]
  8. CEPHALEXIN [Concomitant]
  9. DIAZEPAM [Concomitant]
  10. ETIDRONIC ACID (ETIDRONIC ACID) [Concomitant]
  11. ENOXAPARIN SODIUM [Concomitant]
  12. FLOXACILLIN SODIUM [Concomitant]
  13. FOLIC ACID [Concomitant]
  14. GENTAMICIN [Concomitant]
  15. LANSOPRAZOLE [Concomitant]
  16. ACETAMINOPHEN [Concomitant]
  17. PENICILLIN V [Concomitant]
  18. RISEDRONATE SODIUM [Concomitant]
  19. POTASSIUM CHLORIDE [Concomitant]
  20. SENNA (SENNA ALEXANDRINA) [Concomitant]

REACTIONS (1)
  - NEUTROPENIA [None]
